FAERS Safety Report 20055037 (Version 1)
Quarter: 2021Q4

REPORT INFORMATION
  Report Type: Spontaneous
  Country: None (occurrence: GR)
  Receive Date: 20211110
  Receipt Date: 20211110
  Transmission Date: 20220303
  Serious: Yes (Hospitalization, Other)
  Sender: FDA-Public Use
  Company Number: GR-Avion Pharmaceuticals, LLC-2121715

PATIENT
  Age: 49 Year
  Sex: Male

DRUGS (2)
  1. GLOPERBA [Suspect]
     Active Substance: COLCHICINE
     Indication: Pericarditis
     Route: 065
  2. ROSUVASTATIN CALCIUM [Concomitant]
     Active Substance: ROSUVASTATIN CALCIUM
     Route: 065

REACTIONS (11)
  - Rhabdomyolysis [Unknown]
  - Renal impairment [Unknown]
  - Fatigue [Unknown]
  - Myalgia [Unknown]
  - Chromaturia [Unknown]
  - Urine output decreased [Unknown]
  - Muscular weakness [Unknown]
  - Oedema peripheral [Unknown]
  - Blood creatine phosphokinase increased [Recovered/Resolved]
  - Anaemia [Unknown]
  - Hyperphosphataemia [Unknown]
